FAERS Safety Report 25287998 (Version 1)
Quarter: 2025Q2

REPORT INFORMATION
  Report Type: Spontaneous
  Country: DE (occurrence: DE)
  Receive Date: 20250509
  Receipt Date: 20250509
  Transmission Date: 20250717
  Serious: Yes (Other)
  Sender: NOVARTIS
  Company Number: DE-002147023-NVSC2025DE074841

PATIENT
  Sex: Female

DRUGS (1)
  1. COSENTYX [Suspect]
     Active Substance: SECUKINUMAB
     Indication: Product used for unknown indication
     Route: 065
     Dates: start: 202503

REACTIONS (6)
  - Gastrointestinal disorder [Unknown]
  - Functional gastrointestinal disorder [Unknown]
  - Inflammatory bowel disease [Unknown]
  - Condition aggravated [Unknown]
  - Weight decreased [Unknown]
  - Product dose omission issue [Unknown]
